FAERS Safety Report 4618629-4 (Version None)
Quarter: 2005Q1

REPORT INFORMATION
  Report Type: 
  Country: None (occurrence: None)
  Receive Date: 20050323
  Receipt Date: 20050314
  Transmission Date: 20050727
  Serious: Yes (Other)
  Sender: FDA-Public Use
  Company Number: 200511061BCC

PATIENT
  Sex: Male
  Weight: 99.7913 kg

DRUGS (1)
  1. ASPIRIN [Suspect]
     Indication: MYALGIA
     Dosage: 325 MG, TIW, ORAL; 325  MG, IRR, ORAL
     Route: 048

REACTIONS (2)
  - LOSS OF CONSCIOUSNESS [None]
  - RASH GENERALISED [None]
